FAERS Safety Report 15693128 (Version 1)
Quarter: 2018Q4

REPORT INFORMATION
  Report Type: Spontaneous
  Country: FR (occurrence: FR)
  Receive Date: 20181206
  Receipt Date: 20181206
  Transmission Date: 20190205
  Serious: Yes (Hospitalization)
  Sender: FDA-Public Use
  Company Number: FR-TEVA-2018-FR-981660

PATIENT
  Age: 68 Year
  Sex: Male
  Weight: 88 kg

DRUGS (13)
  1. XGEVA [Suspect]
     Active Substance: DENOSUMAB
     Indication: METASTASES TO BONE
     Route: 058
     Dates: start: 20180822, end: 20180919
  2. MOVICOL [Concomitant]
     Active Substance: POLYETHYLENE GLYCOL 3350\POTASSIUM CHLORIDE\SODIUM BICARBONATE\SODIUM CHLORIDE
  3. PANTOPRAZOLE [Concomitant]
     Active Substance: PANTOPRAZOLE
  4. MEBEVERINE (CHLORHYDRATE DE) [Concomitant]
     Active Substance: MEBEVERINE HYDROCHLORIDE
  5. TRAMADOL BASE [Suspect]
     Active Substance: TRAMADOL
     Indication: PAIN
     Dosage: LP 100MG: 2CP/DAY; 50MG ON DEMAND
     Route: 048
     Dates: start: 20180808, end: 20181004
  6. CANDESARTAN CILEXETIL. [Concomitant]
     Active Substance: CANDESARTAN CILEXETIL
  7. PARACETAMOL [Suspect]
     Active Substance: ACETAMINOPHEN
     Indication: PAIN
     Route: 048
     Dates: start: 20180809
  8. DEXAMETHASONE. [Concomitant]
     Active Substance: DEXAMETHASONE
  9. METFORMINE [Concomitant]
     Active Substance: METFORMIN HYDROCHLORIDE
  10. SIMVASTATINE [Concomitant]
     Active Substance: SIMVASTATIN
  11. MONTELUKAST SODIQUE [Concomitant]
     Active Substance: MONTELUKAST SODIUM
  12. GLICLAZIDE [Concomitant]
     Active Substance: GLICLAZIDE
  13. CALCIDOSE VITAMINE D, POUDRE ORALE EN SACHET-DOSE [Concomitant]
     Active Substance: CALCIUM\CHOLECALCIFEROL

REACTIONS (2)
  - Acute kidney injury [Recovered/Resolved]
  - Urinary retention [Recovered/Resolved with Sequelae]

NARRATIVE: CASE EVENT DATE: 20181004
